FAERS Safety Report 17186152 (Version 1)
Quarter: 2019Q4

REPORT INFORMATION
  Report Type: Spontaneous
  Country: FR (occurrence: FR)
  Receive Date: 20191220
  Receipt Date: 20191220
  Transmission Date: 20200122
  Serious: Yes (Hospitalization)
  Sender: FDA-Public Use
  Company Number: FR-MYLANLABS-2019M1126652

PATIENT
  Age: 53 Year
  Sex: Male
  Weight: 61 kg

DRUGS (6)
  1. TARDYFERON FOLSAURE [Concomitant]
     Active Substance: FERROUS SULFATE\FOLIC ACID
     Indication: MINERAL SUPPLEMENTATION
     Dosage: 80 MILLIGRAM, QD
     Route: 048
     Dates: start: 20190724
  2. ACIDE FOLIQUE [Concomitant]
     Active Substance: FOLIC ACID
     Indication: VITAMIN SUPPLEMENTATION
     Dosage: 0.4 MILLIGRAM, QD
     Route: 048
     Dates: start: 20190724
  3. RISPERIDONE. [Suspect]
     Active Substance: RISPERIDONE
     Indication: DELIRIUM
     Dosage: 4 MILLIGRAM, QD
     Route: 048
     Dates: start: 20190618, end: 20190702
  4. XEPLION [Suspect]
     Active Substance: PALIPERIDONE PALMITATE
     Indication: DELIRIUM
     Dosage: VARIABLE
     Route: 030
     Dates: start: 20190702, end: 20190709
  5. EFFIZINC [Concomitant]
     Active Substance: ZINC GLUCONATE
     Indication: MINERAL SUPPLEMENTATION
     Dosage: 30 MILLIGRAM, QD
     Route: 048
     Dates: start: 20190725
  6. PAROXETINE. [Concomitant]
     Active Substance: PAROXETINE
     Indication: DEPRESSION
     Dosage: 20 MILLIGRAM, QD
     Route: 048
     Dates: start: 20190618

REACTIONS (1)
  - Catatonia [Recovered/Resolved]

NARRATIVE: CASE EVENT DATE: 20190802
